FAERS Safety Report 5146203-2 (Version None)
Quarter: 2006Q4

REPORT INFORMATION
  Report Type: 
  Country: None (occurrence: None)
  Receive Date: 20061106
  Receipt Date: 20061106
  Transmission Date: 20070319
  Serious: Yes (Other)
  Sender: FDA-Public Use
  Company Number: None

PATIENT
  Age: 51 Year
  Sex: Female
  Weight: 64.8644 kg

DRUGS (1)
  1. BONIVA [Suspect]
     Indication: OSTEOPENIA
     Dosage: ONE TABLET ONCE A MONTH PO
     Route: 048
     Dates: start: 20061022, end: 20061022

REACTIONS (5)
  - ARTHRALGIA [None]
  - BACK PAIN [None]
  - FATIGUE [None]
  - GASTROINTESTINAL PAIN [None]
  - MYALGIA [None]
